FAERS Safety Report 12321414 (Version 1)
Quarter: 2016Q2

REPORT INFORMATION
  Report Type: Spontaneous
  Country: CN (occurrence: CN)
  Receive Date: 20160502
  Receipt Date: 20160502
  Transmission Date: 20160815
  Serious: Yes (Other)
  Sender: FDA-Public Use
  Company Number: CN-ROCHE-1750449

PATIENT
  Age: 24 Year
  Sex: Female

DRUGS (4)
  1. PREDNISON [Concomitant]
     Active Substance: PREDNISONE
     Indication: SYSTEMIC LUPUS ERYTHEMATOSUS
     Route: 048
     Dates: start: 2004
  2. CELLCEPT [Suspect]
     Active Substance: MYCOPHENOLATE MOFETIL\MYCOPHENOLATE MOFETIL HYDROCHLORIDE
     Route: 048
     Dates: start: 201405
  3. CELLCEPT [Suspect]
     Active Substance: MYCOPHENOLATE MOFETIL\MYCOPHENOLATE MOFETIL HYDROCHLORIDE
     Indication: SYSTEMIC LUPUS ERYTHEMATOSUS
     Route: 048
     Dates: start: 2011, end: 201405
  4. PREDNISON [Concomitant]
     Active Substance: PREDNISONE
     Route: 048
     Dates: start: 201405

REACTIONS (11)
  - Off label use [Unknown]
  - Aspartate aminotransferase increased [Recovering/Resolving]
  - Blood alkaline phosphatase increased [Recovering/Resolving]
  - Bilirubin conjugated increased [Recovering/Resolving]
  - Globulins increased [Unknown]
  - Skin discolouration [Recovering/Resolving]
  - Ocular icterus [Recovering/Resolving]
  - Blood bilirubin increased [Recovering/Resolving]
  - Blood albumin decreased [Unknown]
  - Alanine aminotransferase increased [Recovering/Resolving]
  - Albumin globulin ratio decreased [Unknown]

NARRATIVE: CASE EVENT DATE: 2011
